FAERS Safety Report 9340499 (Version 1)
Quarter: 2013Q2

REPORT INFORMATION
  Report Type: Spontaneous
  Country: US (occurrence: None)
  Receive Date: 20130610
  Receipt Date: 20130610
  Transmission Date: 20140414
  Serious: No
  Sender: FDA-Public Use
  Company Number: None

PATIENT
  Age: 64 Year
  Sex: Female

DRUGS (1)
  1. HUMIRA [Suspect]
     Dosage: Q 2 WKS
     Route: 058
     Dates: start: 20130510

REACTIONS (2)
  - Fatigue [None]
  - Asthenia [None]
